FAERS Safety Report 14852343 (Version 4)
Quarter: 2018Q2

REPORT INFORMATION
  Report Type: Spontaneous
  Country: US (occurrence: US)
  Receive Date: 20180507
  Receipt Date: 20180607
  Transmission Date: 20180711
  Serious: No
  Sender: FDA-Public Use
  Company Number: US-PFIZER INC-2017452582

PATIENT
  Age: 80 Year
  Sex: Female

DRUGS (9)
  1. FEMARA [Suspect]
     Active Substance: LETROZOLE
     Dosage: 2.5 MG, 1X/DAY
     Dates: start: 20170719
  2. FOLIC ACID. [Concomitant]
     Active Substance: FOLIC ACID
     Dosage: 400 MG, 1X/DAY
  3. XGEVA [Suspect]
     Active Substance: DENOSUMAB
     Indication: BONE CANCER
     Dosage: 1 DF, UNK (1 INJECTION FOR 30DAYS)
     Dates: start: 20170719
  4. LISINOPRIL. [Concomitant]
     Active Substance: LISINOPRIL
     Dosage: 10 MG, UNK
  5. CITRACAL [Concomitant]
     Active Substance: CALCIUM CITRATE
     Dosage: 1200 MG, 2X/DAY
  6. PRESERVISION [Concomitant]
     Active Substance: MINERALS\VITAMINS
     Dosage: UNK, 2X/DAY (TWICE DAILY)
  7. B-12 COMPLEX [Concomitant]
     Dosage: 10 MG, 1X/DAY
  8. IBRANCE [Suspect]
     Active Substance: PALBOCICLIB
     Indication: BONE CANCER
     Dosage: 125 MG, CYCLIC (125 MG ONCE DAILY FOR 21 DAYS)
     Dates: start: 20170719, end: 2018
  9. MAGNESIUM [Concomitant]
     Active Substance: MAGNESIUM
     Dosage: 200 MG, DAILY

REACTIONS (2)
  - Malaise [Recovered/Resolved]
  - Product use in unapproved indication [Unknown]

NARRATIVE: CASE EVENT DATE: 20170719
